FAERS Safety Report 12988338 (Version 1)
Quarter: 2016Q4

REPORT INFORMATION
  Report Type: Spontaneous
  Country: NL (occurrence: NL)
  Receive Date: 20161130
  Receipt Date: 20161130
  Transmission Date: 20170207
  Serious: Yes (Hospitalization)
  Sender: FDA-Public Use
  Company Number: NL-INGENUS PHARMACEUTICALS NJ, LLC-ING201611-000128

PATIENT
  Age: 19 Year
  Sex: Female

DRUGS (1)
  1. PROBENECID AND COLCHICINE [Suspect]
     Active Substance: COLCHICINE\PROBENECID
     Indication: SUICIDE ATTEMPT

REACTIONS (9)
  - Ileus [Unknown]
  - Intentional overdose [Unknown]
  - Alopecia [Unknown]
  - Multiple organ dysfunction syndrome [Unknown]
  - Acute respiratory distress syndrome [Unknown]
  - Toxicity to various agents [Unknown]
  - Haemodynamic instability [Unknown]
  - Bone marrow failure [Unknown]
  - Leukocytosis [Unknown]
